FAERS Safety Report 9508328 (Version 1)
Quarter: 2013Q3

REPORT INFORMATION
  Report Type: Spontaneous
  Country: US (occurrence: None)
  Receive Date: 20130906
  Receipt Date: 20130906
  Transmission Date: 20140515
  Serious: No
  Sender: FDA-Public Use
  Company Number: None

PATIENT
  Age: 53 Year
  Sex: Male

DRUGS (2)
  1. DIAMOX [Suspect]
     Indication: EPILEPSY
  2. TOPAMAX [Suspect]
     Indication: EPILEPSY

REACTIONS (5)
  - Somnolence [None]
  - Fatigue [None]
  - Fatigue [None]
  - Tremor [None]
  - Convulsion [None]
